FAERS Safety Report 18347658 (Version 3)
Quarter: 2020Q4

REPORT INFORMATION
  Report Type: Spontaneous
  Country: JP (occurrence: JP)
  Receive Date: 20201006
  Receipt Date: 20201117
  Transmission Date: 20210114
  Serious: No
  Sender: FDA-Public Use
  Company Number: JP-ASTRAZENECA-2020SF27792

PATIENT
  Age: 46 Year
  Sex: Female
  Weight: 67 kg

DRUGS (7)
  1. NUCALA [Concomitant]
     Active Substance: MEPOLIZUMAB
     Indication: ASTHMA
     Dosage: DOSE UNKNOWN
     Route: 065
     Dates: start: 201802
  2. RELVAR [Concomitant]
     Active Substance: FLUTICASONE FUROATE\VILANTEROL TRIFENATATE
     Indication: ASTHMA
     Route: 055
     Dates: start: 20141212
  3. CALONAL [Concomitant]
     Active Substance: ACETAMINOPHEN
     Indication: MIGRAINE
     Dosage: 500.0MG AS REQUIRED
     Route: 048
     Dates: start: 20140806
  4. MONTELUKAST [Concomitant]
     Active Substance: MONTELUKAST SODIUM
     Indication: ASTHMA
     Route: 048
     Dates: start: 20130614, end: 20190606
  5. IPD [Concomitant]
     Active Substance: SUPLATAST TOSILATE
     Indication: ASTHMA
     Route: 048
     Dates: start: 20150610, end: 20190404
  6. FASENRA [Suspect]
     Active Substance: BENRALIZUMAB
     Indication: ASTHMA
     Route: 058
     Dates: start: 20180809, end: 20190207
  7. MEPTIN AIR [Concomitant]
     Active Substance: PROCATEROL HYDROCHLORIDE
     Indication: ASTHMA
     Dosage: 10.0UG UNKNOWN
     Route: 055

REACTIONS (7)
  - Malaise [Unknown]
  - Ear discomfort [Not Recovered/Not Resolved]
  - Nasal polyps [Not Recovered/Not Resolved]
  - Genital haemorrhage [Recovered/Resolved]
  - Nasal congestion [Not Recovered/Not Resolved]
  - Night sweats [Unknown]
  - Migraine [Not Recovered/Not Resolved]

NARRATIVE: CASE EVENT DATE: 20181004
